FAERS Safety Report 5657592-4 (Version None)
Quarter: 2008Q1

REPORT INFORMATION
  Report Type: 
  Country: None (occurrence: None)
  Receive Date: 20080307
  Receipt Date: 20080307
  Transmission Date: 20080703
  Serious: No
  Sender: FDA-Public Use
  Company Number: None

PATIENT
  Age: 85 Year
  Sex: Female
  Weight: 47.6277 kg

DRUGS (2)
  1. ABILIFY [Suspect]
     Indication: BIPOLAR DISORDER
     Dosage: 5 MG TWICE A DAY PO
     Route: 048
     Dates: start: 20071101, end: 20080212
  2. ABILIFY [Suspect]
     Indication: PSYCHOTIC DISORDER
     Dosage: 5 MG TWICE A DAY PO
     Route: 048
     Dates: start: 20071101, end: 20080212

REACTIONS (2)
  - TARDIVE DYSKINESIA [None]
  - TREMOR [None]
